FAERS Safety Report 14818760 (Version 1)
Quarter: 2018Q2

REPORT INFORMATION
  Report Type: Spontaneous
  Country: US (occurrence: US)
  Receive Date: 20180427
  Receipt Date: 20180427
  Transmission Date: 20180711
  Serious: Yes (Hospitalization, Other)
  Sender: FDA-Public Use
  Company Number: US-ZYDUS-019844

PATIENT
  Age: 17 Year
  Sex: Male

DRUGS (2)
  1. DEXTROAMPHETAMINE. [Suspect]
     Active Substance: DEXTROAMPHETAMINE
     Indication: PRODUCT USED FOR UNKNOWN INDICATION
     Dosage: 15-25 DEXTROAMPHETAMINE 10 MG EXTENDED-RELEASE (ER) CAPSULES
     Route: 048
  2. CLONIDINE. [Suspect]
     Active Substance: CLONIDINE
     Indication: PRODUCT USED FOR UNKNOWN INDICATION
     Dosage: 15-25 CLONIDINE 0.1-MG TABLETS
     Route: 048

REACTIONS (9)
  - Fatigue [Unknown]
  - Photophobia [Unknown]
  - Bradycardia [Recovering/Resolving]
  - Posterior reversible encephalopathy syndrome [Unknown]
  - Nausea [Recovering/Resolving]
  - Intentional overdose [Unknown]
  - Headache [Recovering/Resolving]
  - Confusional state [Unknown]
  - Hypertensive emergency [Recovering/Resolving]
